FAERS Safety Report 8130478-1 (Version None)
Quarter: 2012Q1

REPORT INFORMATION
  Report Type: 
  Country: None (occurrence: None)
  Receive Date: 20120210
  Receipt Date: 20120203
  Transmission Date: 20120608
  Serious: Yes (Other)
  Sender: FDA-Public Use
  Company Number: US-US-EMD SERONO, INC.-237276K06USA

PATIENT
  Sex: Female
  Weight: 58 kg

DRUGS (9)
  1. UNSPECIFIED MEDICATIONS [Concomitant]
  2. ATENOLOL [Concomitant]
     Indication: HYPERTENSION
  3. EFFEXOR [Concomitant]
     Indication: DEPRESSION
     Dates: start: 20060101
  4. NORVASC [Concomitant]
     Indication: HYPERTENSION
  5. REBIF [Suspect]
     Route: 058
     Dates: start: 20090505, end: 20111201
  6. VESICARE [Concomitant]
     Indication: BLADDER DISORDER
     Dates: start: 20080101
  7. STEROIDS [Concomitant]
     Indication: MULTIPLE SCLEROSIS RELAPSE
     Route: 042
     Dates: start: 20060801, end: 20060801
  8. REBIF [Suspect]
     Indication: MULTIPLE SCLEROSIS
     Route: 058
     Dates: start: 20030820, end: 20080801
  9. XANAX [Concomitant]
     Indication: DEPRESSION
     Dates: start: 20060101

REACTIONS (6)
  - OVARIAN CANCER [None]
  - CATARACT [None]
  - CORNEAL DYSTROPHY [None]
  - METASTASES TO LUNG [None]
  - OVARIAN CANCER RECURRENT [None]
  - DEPRESSION [None]
